FAERS Safety Report 10181389 (Version 1)
Quarter: 2014Q2

REPORT INFORMATION
  Report Type: Spontaneous
  Country: BR (occurrence: BR)
  Receive Date: 20140519
  Receipt Date: 20140519
  Transmission Date: 20141212
  Serious: Yes (Hospitalization, Other)
  Sender: FDA-Public Use
  Company Number: BR-009507513-1405BRA005726

PATIENT
  Sex: Female
  Weight: 82 kg

DRUGS (3)
  1. ZENHALE [Suspect]
     Indication: ASTHMA
     Dosage: 2 DF, BID
     Route: 048
     Dates: start: 2013
  2. VENALOT (COUMARIN (+) TROXERUTIN) [Concomitant]
     Indication: LYMPHOEDEMA
     Dosage: 1 DF, QD
     Route: 048
     Dates: start: 2009
  3. BENZETACIL [Concomitant]

REACTIONS (4)
  - Cholecystectomy [Unknown]
  - Cholelithiasis [Unknown]
  - Pruritus [Not Recovered/Not Resolved]
  - Blister [Not Recovered/Not Resolved]
